FAERS Safety Report 6657192-3 (Version None)
Quarter: 2010Q1

REPORT INFORMATION
  Report Type: 
  Country: None (occurrence: None)
  Receive Date: 20100326
  Receipt Date: 20100324
  Transmission Date: 20100710
  Serious: Yes (Death)
  Sender: FDA-Public Use
  Company Number: 2010020037

PATIENT
  Age: 89 Year
  Sex: Female

DRUGS (1)
  1. ONSOLIS [Suspect]
     Indication: CANCER PAIN
     Dosage: TO BE TITRATED (Q 3-4 HOURS PRN, UP TO 4 DOSES DAILY), BU
     Route: 002
     Dates: start: 20091224, end: 20091231

REACTIONS (1)
  - DEATH [None]
